FAERS Safety Report 9651492 (Version 1)
Quarter: 2013Q4

REPORT INFORMATION
  Report Type: Spontaneous
  Country: US (occurrence: None)
  Receive Date: 20131028
  Receipt Date: 20131028
  Transmission Date: 20140711
  Serious: No
  Sender: FDA-Public Use
  Company Number: None

PATIENT
  Age: 15 Year
  Sex: Male
  Weight: 62 kg

DRUGS (5)
  1. SEROQUEL [Suspect]
     Dosage: 100 MG (1TAB) QHS/BEDTIME ORAL
     Route: 048
     Dates: start: 20131022, end: 20131023
  2. ABILIFY [Concomitant]
  3. PROZAC [Concomitant]
  4. INSULIN SLIDING SCALE [Concomitant]
  5. LEVEMIR [Concomitant]

REACTIONS (1)
  - Blood glucose increased [None]
